FAERS Safety Report 19669228 (Version 4)
Quarter: 2021Q3

REPORT INFORMATION
  Report Type: Report from Study
  Country: PT (occurrence: PT)
  Receive Date: 20210806
  Receipt Date: 20210901
  Transmission Date: 20211014
  Serious: Yes (Life-Threatening, Hospitalization)
  Sender: FDA-Public Use
  Company Number: PT-JNJFOC-20210811710

PATIENT
  Sex: Female

DRUGS (7)
  1. PONESIMOD [Suspect]
     Active Substance: PONESIMOD
     Route: 048
     Dates: start: 20190117, end: 20210803
  2. SALUTEC [Concomitant]
     Active Substance: HYDROCHLOROTHIAZIDE\RAMIPRIL
     Indication: HYPERTENSION
     Dosage: 5+25 MG ONCE A DAY
     Route: 048
     Dates: start: 20210715
  3. PONESIMOD [Suspect]
     Active Substance: PONESIMOD
     Indication: RELAPSING MULTIPLE SCLEROSIS
     Route: 048
     Dates: start: 20161129
  4. PONESIMOD [Suspect]
     Active Substance: PONESIMOD
     Route: 048
     Dates: start: 20210807
  5. CYAMEMAZINE [Suspect]
     Active Substance: CYAMEMAZINE
  6. RAMIPRIL. [Concomitant]
     Active Substance: RAMIPRIL
     Indication: HYPERTENSION
     Route: 048
     Dates: start: 20210714
  7. FOLICIL [Concomitant]
     Active Substance: FOLIC ACID
     Indication: THALASSAEMIA BETA
     Route: 048

REACTIONS (1)
  - Toxicity to various agents [Recovered/Resolved]

NARRATIVE: CASE EVENT DATE: 20210803
